FAERS Safety Report 10609764 (Version 1)
Quarter: 2014Q4

REPORT INFORMATION
  Report Type: Spontaneous
  Country: ES (occurrence: None)
  Receive Date: 20141124
  Receipt Date: 20141124
  Transmission Date: 20150529
  Serious: Yes (Other)
  Sender: FDA-Public Use
  Company Number: ADR-2014-02211

PATIENT
  Age: 31 Year
  Sex: Male

DRUGS (4)
  1. CLONAZEPAM. [Suspect]
     Active Substance: CLONAZEPAM
  2. LIORESAL [Suspect]
     Active Substance: BACLOFEN
     Indication: MUSCLE SPASTICITY
     Dates: start: 201301
  3. TINAZIDINE [Suspect]
     Active Substance: TIZANIDINE
  4. DIAZEPAM. [Suspect]
     Active Substance: DIAZEPAM

REACTIONS (6)
  - Metabolic encephalopathy [None]
  - Hypoxic-ischaemic encephalopathy [None]
  - Toxic encephalopathy [None]
  - Haemodialysis [None]
  - Chronic kidney disease [None]
  - Psychomotor hyperactivity [None]
